FAERS Safety Report 20193987 (Version 1)
Quarter: 2021Q4

REPORT INFORMATION
  Report Type: Spontaneous
  Country: BE (occurrence: BE)
  Receive Date: 20211216
  Receipt Date: 20211216
  Transmission Date: 20220303
  Serious: Yes (Hospitalization)
  Sender: FDA-Public Use
  Company Number: BE-TAKEDA-2021TUS070943

PATIENT
  Sex: Male

DRUGS (3)
  1. INTUNIV [Suspect]
     Active Substance: GUANFACINE HYDROCHLORIDE
     Indication: Attention deficit hyperactivity disorder
     Dosage: 1 MILLIGRAM
     Route: 065
     Dates: start: 20210115, end: 202102
  2. INTUNIV [Suspect]
     Active Substance: GUANFACINE HYDROCHLORIDE
     Indication: Tourette^s disorder
     Dosage: 2 MILLIGRAM
     Route: 065
     Dates: start: 20210115, end: 202102
  3. ORAP [Concomitant]
     Active Substance: PIMOZIDE
     Dosage: 6 MILLIGRAM
     Route: 065

REACTIONS (10)
  - General physical health deterioration [Unknown]
  - Apathy [Unknown]
  - Blood pressure decreased [Unknown]
  - Dysstasia [Unknown]
  - Reflexes abnormal [Unknown]
  - Autonomic nervous system imbalance [Unknown]
  - Muscular weakness [Unknown]
  - Malaise [Unknown]
  - Somnolence [Unknown]
  - Fatigue [Unknown]

NARRATIVE: CASE EVENT DATE: 20210101
